FAERS Safety Report 4854737-0 (Version None)
Quarter: 2005Q4

REPORT INFORMATION
  Report Type: 
  Country: None (occurrence: None)
  Receive Date: 20051215
  Receipt Date: 20051208
  Transmission Date: 20060501
  Serious: Yes (Other)
  Sender: FDA-Public Use
  Company Number: US-GLAXOSMITHKLINE-A0585720A

PATIENT
  Age: 20 Year
  Sex: Female

DRUGS (1)
  1. PAXIL [Suspect]
     Indication: PANIC DISORDER

REACTIONS (3)
  - MENTAL DISORDER [None]
  - PANIC DISORDER [None]
  - SUICIDAL IDEATION [None]
